FAERS Safety Report 4331105-1 (Version None)
Quarter: 2004Q1

REPORT INFORMATION
  Report Type: 
  Country: None (occurrence: None)
  Receive Date: 20040331
  Receipt Date: 20040317
  Transmission Date: 20041129
  Serious: Yes (Hospitalization, Other)
  Sender: FDA-Public Use
  Company Number: 2004018694

PATIENT
  Age: 61 Year
  Sex: Female
  Weight: 99.7913 kg

DRUGS (6)
  1. LOPID [Suspect]
     Indication: BLOOD TRIGLYCERIDES
     Dosage: 600 MG (DAILY), ORAL
     Route: 048
  2. SIMVASTATIN [Suspect]
     Indication: BLOOD CHOLESTEROL INCREASED
  3. WARFARIN SODIUM [Suspect]
     Indication: THROMBOSIS
     Dosage: 4 MG (DAILY),
  4. ACETAMINOPHEN [Suspect]
     Indication: PAIN
     Dosage: (QID),
     Dates: start: 20040101
  5. ALLOPURINOL [Concomitant]
  6. DIURETICS [Concomitant]

REACTIONS (11)
  - ASTHENIA [None]
  - CEREBROVASCULAR ACCIDENT [None]
  - DRUG INTERACTION [None]
  - FALL [None]
  - FEELING ABNORMAL [None]
  - HERNIA [None]
  - INTESTINAL OBSTRUCTION [None]
  - MUSCULOSKELETAL STIFFNESS [None]
  - PAIN [None]
  - PARALYSIS [None]
  - THROMBOSIS [None]
